FAERS Safety Report 25376233 (Version 3)
Quarter: 2025Q2

REPORT INFORMATION
  Report Type: Spontaneous
  Country: US (occurrence: US)
  Receive Date: 20250529
  Receipt Date: 20250604
  Transmission Date: 20250717
  Serious: Yes (Death, Hospitalization)
  Sender: EISAI
  Company Number: US-Eisai-EC-2025-190094

PATIENT
  Age: 59 Year
  Sex: Female
  Weight: 68.9 kg

DRUGS (2)
  1. LENVIMA [Suspect]
     Active Substance: LENVATINIB
     Indication: Product used for unknown indication
  2. KEYTRUDA [Suspect]
     Active Substance: PEMBROLIZUMAB
     Indication: Product used for unknown indication

REACTIONS (2)
  - Gastrointestinal perforation [Fatal]
  - Sepsis [Unknown]

NARRATIVE: CASE EVENT DATE: 20250401
